FAERS Safety Report 11820192 (Version 1)
Quarter: 2015Q4

REPORT INFORMATION
  Report Type: Spontaneous
  Country: US (occurrence: None)
  Receive Date: 20151209
  Receipt Date: 20151209
  Transmission Date: 20160305
  Serious: Yes (Hospitalization, Disabling)
  Sender: FDA-Public Use
  Company Number: None

PATIENT
  Age: 73 Year
  Sex: Female
  Weight: 94.8 kg

DRUGS (15)
  1. INVOKANA [Suspect]
     Active Substance: CANAGLIFLOZIN
     Indication: TYPE 2 DIABETES MELLITUS
     Route: 048
     Dates: start: 20150605, end: 20151207
  2. JANUMET [Concomitant]
     Active Substance: METFORMIN HYDROCHLORIDE\SITAGLIPTIN PHOSPHATE
  3. METOPROLOL [Concomitant]
     Active Substance: METOPROLOL
  4. KRILL OIL [Concomitant]
     Active Substance: DIETARY SUPPLEMENT
  5. AMLODIPINE [Concomitant]
     Active Substance: AMLODIPINE BESYLATE
  6. ELIQUIST [Concomitant]
  7. ALEVE [Concomitant]
     Active Substance: NAPROXEN SODIUM
  8. ATORVASTATIN [Concomitant]
     Active Substance: ATORVASTATIN
  9. FLONASE [Concomitant]
     Active Substance: FLUTICASONE PROPIONATE
  10. TURMERIC [Concomitant]
     Active Substance: TURMERIC
  11. CRANBERRY. [Concomitant]
     Active Substance: CRANBERRY
  12. VIT. B12 [Concomitant]
  13. GLIMEPRIZIDE [Concomitant]
  14. FENOFIBRATE. [Concomitant]
     Active Substance: FENOFIBRATE
  15. FOMATIDINE [Concomitant]

REACTIONS (4)
  - Rash [None]
  - Cerebrovascular accident [None]
  - Urinary tract infection [None]
  - Cognitive disorder [None]

NARRATIVE: CASE EVENT DATE: 20151203
